FAERS Safety Report 18229310 (Version 1)
Quarter: 2020Q3

REPORT INFORMATION
  Report Type: Spontaneous
  Country: US (occurrence: US)
  Receive Date: 20200903
  Receipt Date: 20200903
  Transmission Date: 20201103
  Serious: No
  Sender: FDA-Public Use
  Company Number: US-PERRIGO-20US003265

PATIENT
  Age: 53 Year
  Sex: Female
  Weight: 65.76 kg

DRUGS (5)
  1. EVAMIST [Suspect]
     Active Substance: ESTRADIOL
     Indication: HORMONE THERAPY
     Dosage: 1.53 MG, BID
     Route: 061
     Dates: start: 2017, end: 20200216
  2. EVAMIST [Suspect]
     Active Substance: ESTRADIOL
     Dosage: 1.53 MG, BID
     Route: 061
     Dates: start: 20200217, end: 20200218
  3. EVAMIST [Suspect]
     Active Substance: ESTRADIOL
     Dosage: UNKNOWN, BID
     Route: 061
     Dates: start: 20200219
  4. FEXOFENADINE [Concomitant]
     Active Substance: FEXOFENADINE HYDROCHLORIDE
     Indication: MITE ALLERGY
     Dosage: UNK
     Route: 065
  5. MAGNESIUM [Concomitant]
     Active Substance: MAGNESIUM
     Indication: SUPPLEMENTATION THERAPY
     Dosage: UNK
     Route: 065

REACTIONS (1)
  - Underdose [Not Recovered/Not Resolved]

NARRATIVE: CASE EVENT DATE: 20200219
